FAERS Safety Report 17202478 (Version 1)
Quarter: 2019Q4

REPORT INFORMATION
  Report Type: Spontaneous
  Country: SI (occurrence: SI)
  Receive Date: 20191226
  Receipt Date: 20191226
  Transmission Date: 20200122
  Serious: Yes (Other)
  Sender: FDA-Public Use
  Company Number: SI-AMGEN-SVNSP2019212586

PATIENT
  Sex: Female

DRUGS (4)
  1. ENAP H [Concomitant]
  2. SALOFALK [MESALAZINE] [Concomitant]
     Active Substance: MESALAMINE
     Dosage: 4000 MILLIGRAM, QD
  3. AMGEVITA [Suspect]
     Active Substance: ADALIMUMAB
     Indication: COLITIS ULCERATIVE
     Dosage: 40/50
     Route: 058
     Dates: end: 201912
  4. BUDEZONID FERRING [Concomitant]
     Dosage: 9 MILLIGRAM, QOD

REACTIONS (1)
  - Oesophageal adenocarcinoma [Unknown]
